FAERS Safety Report 8082688-X (Version None)
Quarter: 2012Q1

REPORT INFORMATION
  Report Type: 
  Country: None (occurrence: None)
  Receive Date: 20120127
  Receipt Date: 20110224
  Transmission Date: 20120608
  Serious: No
  Sender: FDA-Public Use
  Company Number: US-ABBOTT-11P-163-0707618-00

PATIENT
  Sex: Female
  Weight: 70.37 kg

DRUGS (3)
  1. HUMIRA [Suspect]
     Indication: CROHN'S DISEASE
     Dosage: HAD THE RECOMMENDED 80MG LOADING
     Dates: start: 20110112
  2. AMBIEN [Concomitant]
     Indication: INSOMNIA
  3. SEROQUEL [Concomitant]
     Indication: POST-TRAUMATIC STRESS DISORDER

REACTIONS (3)
  - DRY THROAT [None]
  - SNEEZING [None]
  - MENSTRUATION IRREGULAR [None]
